FAERS Safety Report 25047642 (Version 1)
Quarter: 2025Q1

REPORT INFORMATION
  Report Type: Spontaneous
  Country: CN (occurrence: CN)
  Receive Date: 20250306
  Receipt Date: 20250306
  Transmission Date: 20250409
  Serious: Yes (Other)
  Sender: BEIGENE
  Company Number: CN-BEIGENE-BGN-2025-003274

PATIENT
  Age: 62 Year
  Weight: 56 kg

DRUGS (8)
  1. TISLELIZUMAB [Suspect]
     Active Substance: TISLELIZUMAB
     Indication: Oesophageal carcinoma
     Dosage: 200 MILLIGRAM, Q3WK
  2. TISLELIZUMAB [Suspect]
     Active Substance: TISLELIZUMAB
     Dosage: 200 MILLIGRAM, Q3WK
     Route: 041
  3. TISLELIZUMAB [Suspect]
     Active Substance: TISLELIZUMAB
     Dosage: 200 MILLIGRAM, Q3WK
     Route: 041
  4. TISLELIZUMAB [Suspect]
     Active Substance: TISLELIZUMAB
     Dosage: 200 MILLIGRAM, Q3WK
  5. OXALIPLATIN [Suspect]
     Active Substance: OXALIPLATIN
     Indication: Oesophageal carcinoma
     Dosage: 150 MILLIGRAM, Q3WK
     Route: 041
  6. OXALIPLATIN [Suspect]
     Active Substance: OXALIPLATIN
     Dosage: 150 MILLIGRAM, Q3WK
  7. PACLITAXEL [Concomitant]
     Active Substance: PACLITAXEL
     Indication: Oesophageal carcinoma
     Dosage: 200 MILLIGRAM, Q3WK
     Route: 041
  8. PACLITAXEL [Concomitant]
     Active Substance: PACLITAXEL
     Dosage: 200 MILLIGRAM, Q3WK

REACTIONS (1)
  - Acute kidney injury [Recovering/Resolving]
